FAERS Safety Report 21455587 (Version 1)
Quarter: 2022Q4

REPORT INFORMATION
  Report Type: Other
  Country: US (occurrence: None)
  Receive Date: 20221014
  Receipt Date: 20221014
  Transmission Date: 20230113
  Serious: Yes (Other)
  Sender: FDA-Public Use
  Company Number: US-ROCHE-3120289

PATIENT
  Sex: Male

DRUGS (2)
  1. XELODA [Suspect]
     Active Substance: CAPECITABINE
     Indication: Colorectal cancer metastatic
     Dosage: TAKE 4 TABLET(S) BY MOUTH IN THE MORNING , TAKE 3 TABLET(S) BY MOUTH IN THE EVENING 2 WEEK(S) ON, 1
     Route: 048
  2. XELODA [Suspect]
     Active Substance: CAPECITABINE
     Indication: Colon cancer

REACTIONS (7)
  - Fall [Unknown]
  - Bedridden [Unknown]
  - Amnesia [Unknown]
  - Back injury [Unknown]
  - Upper limb fracture [Unknown]
  - Lower limb fracture [Recovering/Resolving]
  - Rib fracture [Unknown]
